FAERS Safety Report 6491742-5 (Version None)
Quarter: 2009Q4

REPORT INFORMATION
  Report Type: 
  Country: None (occurrence: None)
  Receive Date: 20091208
  Receipt Date: 20091124
  Transmission Date: 20100525
  Serious: Yes (Death, Life-Threatening)
  Sender: FDA-Public Use
  Company Number: DSJ-2007-02272

PATIENT
  Age: 35 Year
  Sex: Female
  Weight: 47.5 kg

DRUGS (16)
  1. OLMESARTAN MEDOXOMIL [Suspect]
     Indication: PORTAL HYPERTENSION
     Dosage: 10 MG ( 10 MG, 1 IN 1 D), PER ORAL
     Route: 048
     Dates: start: 20070328, end: 20070328
  2. ALLOPURINOL [Concomitant]
  3. OMEPRAZOLE [Concomitant]
  4. DIART (AZOSEMIDE) [Concomitant]
  5. KANAMYCIN [Concomitant]
  6. PRIMPERAN TAB [Concomitant]
  7. POLYFUL (POLYCARBOPHIL CALCIUM) [Concomitant]
  8. FUROSEMIDE [Concomitant]
  9. PIROLACTON        (SPIRONOLACTONE) [Concomitant]
  10. ADONA       (CARBAZOCHROME SODIUM SULFONATE) [Concomitant]
  11. LACTULOSE SYRUP  (LACTULOSE) (SYRUP) [Concomitant]
  12. FERRUM (FERROUS FUMARATE) [Concomitant]
  13. PANANCOCIN-S (CLINDAMYCIN PHOSPHATE) [Concomitant]
  14. AMINOLEBAN (AMINO ACIDS NOS) [Concomitant]
  15. HUMAN SERUM ALBUMIN (ALBUMIN HUMAN) [Concomitant]
  16. HUMALOG [Concomitant]

REACTIONS (19)
  - ASCITES [None]
  - CARDIOVASCULAR DISORDER [None]
  - DEPRESSED LEVEL OF CONSCIOUSNESS [None]
  - DISEASE PROGRESSION [None]
  - EMOTIONAL DISTRESS [None]
  - EYE DISORDER [None]
  - HEADACHE [None]
  - HYPERTHERMIA [None]
  - MALAISE [None]
  - MELAENA [None]
  - MUSCULAR WEAKNESS [None]
  - NECK PAIN [None]
  - PALPITATIONS [None]
  - PERITONITIS BACTERIAL [None]
  - PORTAL HYPERTENSION [None]
  - PORTAL HYPERTENSIVE ENTEROPATHY [None]
  - PYREXIA [None]
  - RENAL FAILURE ACUTE [None]
  - RENAL IMPAIRMENT [None]
